FAERS Safety Report 4544519-1 (Version None)
Quarter: 2004Q4

REPORT INFORMATION
  Report Type: 
  Country: None (occurrence: None)
  Receive Date: 20041230
  Receipt Date: 20041216
  Transmission Date: 20050328
  Serious: Yes (Hospitalization)
  Sender: FDA-Public Use
  Company Number: 2004UW24244

PATIENT
  Age: 41 Year
  Sex: Female
  Weight: 102.5129 kg

DRUGS (6)
  1. BUDESONIDE + FORMOTEROL   (SYMBICORT) [Suspect]
     Indication: ASTHMA
     Dosage: 80/4.5 UG
     Dates: start: 20041110, end: 20041123
  2. ALBUTEROL [Concomitant]
  3. NEXIUM [Concomitant]
  4. FOSINOPRIL [Concomitant]
  5. ZYRTEC [Concomitant]
  6. SINGULAIR [Concomitant]

REACTIONS (8)
  - ABDOMINAL PAIN UPPER [None]
  - CHEST PAIN [None]
  - HYPOCHROMIC ANAEMIA [None]
  - JAUNDICE [None]
  - LIVER FUNCTION TEST ABNORMAL [None]
  - NAUSEA [None]
  - SYNCOPE [None]
  - VOMITING [None]
